FAERS Safety Report 11454043 (Version 3)
Quarter: 2017Q4

REPORT INFORMATION
  Report Type: Report from Study
  Country: US (occurrence: US)
  Receive Date: 20150903
  Receipt Date: 20171104
  Transmission Date: 20180320
  Serious: Yes (Other)
  Sender: FDA-Public Use
  Company Number: US-ROCHE-1629267

PATIENT
  Age: 11 Year
  Sex: Male
  Weight: 18.52 kg

DRUGS (9)
  1. LEVOTHYROXINE SODIUM. [Concomitant]
     Active Substance: LEVOTHYROXINE SODIUM
     Route: 048
  2. CORTEF [Concomitant]
     Active Substance: HYDROCORTISONE
     Dosage: 1/2 TAB
     Route: 048
  3. LEVOXYL [Concomitant]
     Active Substance: LEVOTHYROXINE SODIUM
  4. NUTROPIN AQ [Suspect]
     Active Substance: SOMATROPIN
     Indication: HYPOPITUITARISM
     Route: 058
  5. NUTROPIN AQ [Suspect]
     Active Substance: SOMATROPIN
     Dosage: THERAPY START DATE 21/MAR/2017
     Route: 058
  6. TESTOSTERONE ENANTHATE. [Concomitant]
     Active Substance: TESTOSTERONE ENANTHATE
     Route: 030
     Dates: start: 20150722, end: 20160419
  7. TESTOSTERONE ENANTHATE. [Concomitant]
     Active Substance: TESTOSTERONE ENANTHATE
     Route: 030
     Dates: start: 201706
  8. NUTROPIN AQ [Suspect]
     Active Substance: SOMATROPIN
     Route: 058
  9. SINGULAIR [Concomitant]
     Active Substance: MONTELUKAST SODIUM
     Route: 065

REACTIONS (28)
  - Growth retardation [Unknown]
  - Blood glucose decreased [Unknown]
  - Haematocrit decreased [Unknown]
  - Blood corticotrophin decreased [Unknown]
  - Blood luteinising hormone decreased [Unknown]
  - Eosinophil count increased [Unknown]
  - Malaise [Unknown]
  - Blood alkaline phosphatase decreased [Unknown]
  - Red blood cell count decreased [Unknown]
  - Blood chloride increased [Unknown]
  - Neutrophil count decreased [Unknown]
  - Delayed puberty [Unknown]
  - Thyroxine free decreased [Unknown]
  - Hyperglycaemia [Unknown]
  - Blood follicle stimulating hormone decreased [Unknown]
  - Blood testosterone decreased [Unknown]
  - Blood creatinine decreased [Unknown]
  - Blood thyroid stimulating hormone decreased [Unknown]
  - Hypothyroidism [Unknown]
  - Insulin-like growth factor increased [Unknown]
  - Cortisol decreased [Unknown]
  - Blood calcium decreased [Unknown]
  - Secondary hypogonadism [Unknown]
  - Anaemia [Unknown]
  - Blood albumin decreased [Unknown]
  - Vitamin D decreased [Unknown]
  - Bone density increased [Unknown]
  - Haemoglobin decreased [Unknown]

NARRATIVE: CASE EVENT DATE: 20140217
